FAERS Safety Report 24841438 (Version 1)
Quarter: 2025Q1

REPORT INFORMATION
  Report Type: Spontaneous
  Country: US (occurrence: None)
  Receive Date: 20250114
  Receipt Date: 20250114
  Transmission Date: 20250408
  Serious: Yes (Death, Life-Threatening, Hospitalization)
  Sender: FDA-CTU
  Company Number: None

PATIENT
  Age: 76 Year
  Sex: Male

DRUGS (2)
  1. WARFARIN SODIUM [Suspect]
     Active Substance: WARFARIN SODIUM
     Indication: Cardiac valve disease
     Dates: end: 20241107
  2. WARFARIN SODIUM [Suspect]
     Active Substance: WARFARIN SODIUM
     Dates: end: 20241107

REACTIONS (1)
  - Joint effusion [None]

NARRATIVE: CASE EVENT DATE: 20241105
